FAERS Safety Report 10008903 (Version 1)
Quarter: 2014Q1

REPORT INFORMATION
  Report Type: Spontaneous
  Country: SE (occurrence: SE)
  Receive Date: 20140313
  Receipt Date: 20140313
  Transmission Date: 20141002
  Serious: Yes (Other)
  Sender: FDA-Public Use
  Company Number: PHHY2014SE027567

PATIENT
  Age: 69 Year
  Sex: Male

DRUGS (2)
  1. SANDIMMUN NEORAL [Suspect]
  2. SIMVASTATIN [Suspect]

REACTIONS (1)
  - Renal failure acute [Not Recovered/Not Resolved]
